FAERS Safety Report 18182901 (Version 2)
Quarter: 2021Q2

REPORT INFORMATION
  Report Type: Spontaneous
  Country: US (occurrence: US)
  Receive Date: 20200821
  Receipt Date: 20210428
  Transmission Date: 20210717
  Serious: No
  Sender: FDA-Public Use
  Company Number: US-PFIZER INC-2020323474

PATIENT
  Age: 75 Year
  Sex: Female

DRUGS (2)
  1. IBRANCE [Suspect]
     Active Substance: PALBOCICLIB
     Dosage: 100 MG
     Dates: start: 20200820
  2. IBRANCE [Suspect]
     Active Substance: PALBOCICLIB
     Dosage: 100 MG
     Dates: start: 20200722

REACTIONS (6)
  - Blood count abnormal [Unknown]
  - Fatigue [Unknown]
  - Hair texture abnormal [Unknown]
  - Solar dermatitis [Recovered/Resolved]
  - Asthenia [Unknown]
  - Hair colour changes [Unknown]

NARRATIVE: CASE EVENT DATE: 20210327
